FAERS Safety Report 6245121-6 (Version None)
Quarter: 2009Q2

REPORT INFORMATION
  Report Type: 
  Country: None (occurrence: None)
  Receive Date: 20090623
  Receipt Date: 20090623
  Transmission Date: 20091009
  Serious: Yes (Other)
  Sender: FDA-Public Use
  Company Number: None

PATIENT
  Age: 55 Year
  Sex: Female
  Weight: 103.8737 kg

DRUGS (1)
  1. AVELOX [Suspect]
     Indication: SINUSITIS
     Dosage: 1 TAB DAILY
     Dates: start: 20090619, end: 20090619

REACTIONS (8)
  - BURNING SENSATION [None]
  - GENERALISED ERYTHEMA [None]
  - HYPOAESTHESIA [None]
  - HYPOAESTHESIA FACIAL [None]
  - OCULAR HYPERAEMIA [None]
  - PRURITUS GENERALISED [None]
  - RESPIRATORY DISORDER [None]
  - SKIN TIGHTNESS [None]
